FAERS Safety Report 16584846 (Version 1)
Quarter: 2019Q3

REPORT INFORMATION
  Report Type: Spontaneous
  Country: PL (occurrence: PL)
  Receive Date: 20190717
  Receipt Date: 20190717
  Transmission Date: 20191004
  Serious: Yes (Hospitalization)
  Sender: FDA-Public Use
  Company Number: PL-TEVA-2019-PL-1079866

PATIENT
  Sex: Male

DRUGS (4)
  1. TEVAGRASTIM [Suspect]
     Active Substance: FILGRASTIM
     Indication: MALIGNANT RESPIRATORY TRACT NEOPLASM
     Route: 042
  2. NAVELBINE [Suspect]
     Active Substance: VINORELBINE TARTRATE
     Indication: MALIGNANT RESPIRATORY TRACT NEOPLASM
     Dosage: 30 MG/M2
     Route: 042
     Dates: start: 20140918, end: 20140918
  3. NAVELBINE [Suspect]
     Active Substance: VINORELBINE TARTRATE
     Dates: start: 20140911, end: 20140911
  4. CISPLATIN ACCORD [Suspect]
     Active Substance: CISPLATIN
     Indication: MALIGNANT RESPIRATORY TRACT NEOPLASM
     Dosage: 80 MG/M2
     Route: 042
     Dates: start: 20140911, end: 20140911

REACTIONS (2)
  - Granulocytopenia [Recovering/Resolving]
  - Leukopenia [Recovering/Resolving]
